FAERS Safety Report 8672408 (Version 4)
Quarter: 2012Q4

REPORT INFORMATION
  Report Type: 
  Country: US (occurrence: US)
  Receive Date: 20120719
  Receipt Date: 20121107
  Transmission Date: 20130627
  Serious: No
  Sender: FDA-Public Use
  Company Number: US-B.I. PHARMACEUTICALS,INC./RIDGEFIELD-2012-BP-15164BP

PATIENT
  Age: 82 Year
  Sex: Female

DRUGS (13)
  1. SPIRIVA [Suspect]
     Indication: CHRONIC OBSTRUCTIVE PULMONARY DISEASE
     Dosage: 18 mcg
     Route: 055
     Dates: start: 201204
  2. CRESTOR [Concomitant]
     Indication: BLOOD CHOLESTEROL INCREASED
     Dates: start: 2010
  3. ASPIRIN [Concomitant]
     Indication: CARDIAC DISORDER
     Dosage: 81 mg
     Route: 048
     Dates: start: 2010
  4. EYE VITAMIN [Concomitant]
     Indication: SUPPLEMENTATION THERAPY
     Dates: start: 2010
  5. METOPROLOL [Concomitant]
     Indication: HYPERTENSION
     Dosage: 25 mg
     Route: 048
     Dates: start: 2010
  6. MULTIVITAMIN [Concomitant]
     Indication: SUPPLEMENTATION THERAPY
     Route: 048
     Dates: start: 2007
  7. VITAMIN B12 [Concomitant]
     Indication: CARDIAC DISORDER
     Dosage: 1000 mg
     Route: 048
     Dates: start: 2010
  8. ATORVASTATIN [Concomitant]
     Indication: BLOOD CHOLESTEROL INCREASED
     Dosage: 20 mg
     Route: 048
     Dates: start: 2010
  9. ALBUTEROL SULFATE AND IPRATROPIUM BROMIDE [Concomitant]
     Indication: CHRONIC OBSTRUCTIVE PULMONARY DISEASE
     Route: 055
     Dates: start: 201204
  10. CALCIUM AND VITAMIN D [Concomitant]
     Indication: ROUTINE HEALTH MAINTENANCE
     Route: 048
     Dates: start: 2011
  11. I CAPS [Concomitant]
     Indication: EYE DISORDER
     Route: 048
     Dates: start: 2008
  12. FUROSEMIDE [Concomitant]
     Indication: CARDIAC DISORDER
     Dosage: 20 mg
     Route: 048
     Dates: start: 2010
  13. ROPINIROLE HCL [Concomitant]
     Indication: RESTLESS LEGS SYNDROME
     Dosage: 0.25 mg
     Route: 048
     Dates: start: 201206

REACTIONS (3)
  - Dyspnoea [Not Recovered/Not Resolved]
  - Product quality issue [Not Recovered/Not Resolved]
  - Dyspnoea [Unknown]
